FAERS Safety Report 17316063 (Version 3)
Quarter: 2020Q1

REPORT INFORMATION
  Report Type: Spontaneous
  Country: RU (occurrence: RU)
  Receive Date: 20200124
  Receipt Date: 20200219
  Transmission Date: 20200409
  Serious: Yes (Other)
  Sender: FDA-Public Use
  Company Number: RU-SA-2020SA016024

PATIENT
  Age: 31 Year
  Sex: Male

DRUGS (5)
  1. TOUJEO [Suspect]
     Active Substance: INSULIN GLARGINE
     Dosage: 18 IU, QD
     Route: 058
     Dates: start: 202002
  2. NOVORAPID [Concomitant]
     Active Substance: INSULIN ASPART
     Indication: TYPE 1 DIABETES MELLITUS
     Dosage: 4 TIMES A DAY, MORNING
     Route: 058
     Dates: start: 20200118, end: 20200129
  3. TOUJEO [Suspect]
     Active Substance: INSULIN GLARGINE
     Dosage: 22 IU, QD
     Route: 058
     Dates: start: 20200129
  4. APIDRA SOLOSTAR [Concomitant]
     Active Substance: INSULIN GLULISINE
     Indication: TYPE 1 DIABETES MELLITUS
     Dosage: 4 TIMES A DAY, DOSAGE DEPENDING ON BU AND BLOOD SUGAR LEVEL
     Route: 058
     Dates: start: 20191225, end: 20200117
  5. TOUJEO [Suspect]
     Active Substance: INSULIN GLARGINE
     Indication: TYPE 1 DIABETES MELLITUS
     Dosage: 30 IU, QD
     Route: 058
     Dates: start: 20191225, end: 20200129

REACTIONS (3)
  - Chills [Unknown]
  - Hypoglycaemia [Recovered/Resolved]
  - Depressed level of consciousness [Unknown]

NARRATIVE: CASE EVENT DATE: 20200118
